FAERS Safety Report 7814931-3 (Version None)
Quarter: 2011Q4

REPORT INFORMATION
  Report Type: 
  Country: None (occurrence: None)
  Receive Date: 20111012
  Receipt Date: 20110930
  Transmission Date: 20120403
  Serious: Yes (Hospitalization)
  Sender: FDA-Public Use
  Company Number: JPI-P-017412

PATIENT
  Age: 45 Year
  Sex: Female

DRUGS (4)
  1. XYREM [Suspect]
     Dosage: ORAL : ORAL : 6 GM (3 GM,2 IN 1 D), ORAL : 7.5 GM (3.75 GM,2 IN 1 D), ORAL
     Route: 048
     Dates: start: 20110501
  2. XYREM [Suspect]
     Dosage: ORAL : ORAL : 6 GM (3 GM,2 IN 1 D), ORAL : 7.5 GM (3.75 GM,2 IN 1 D), ORAL
     Route: 048
     Dates: end: 20110705
  3. XYREM [Suspect]
     Dosage: ORAL : ORAL : 6 GM (3 GM,2 IN 1 D), ORAL : 7.5 GM (3.75 GM,2 IN 1 D), ORAL
     Route: 048
     Dates: start: 20110713, end: 20110101
  4. XYREM [Suspect]
     Dosage: ORAL : ORAL : 6 GM (3 GM,2 IN 1 D), ORAL : 7.5 GM (3.75 GM,2 IN 1 D), ORAL
     Route: 048
     Dates: start: 20110101

REACTIONS (2)
  - HYPERTENSION [None]
  - INSOMNIA [None]
